FAERS Safety Report 4645370-4 (Version None)
Quarter: 2005Q2

REPORT INFORMATION
  Report Type: 
  Country: None (occurrence: None)
  Receive Date: 20050331
  Receipt Date: 20041220
  Transmission Date: 20051028
  Serious: No
  Sender: FDA-Public Use
  Company Number: 04P-163-0283996-00

PATIENT
  Age: 65 Year
  Sex: Female
  Weight: 77.1115 kg

DRUGS (7)
  1. HUMIRA [Suspect]
     Indication: RHEUMATOID ARTHRITIS
     Dosage: 40 MG, 1 IN 1 WK, SUBCUTANEOUS
     Route: 058
     Dates: start: 20040901, end: 20041201
  2. HUMIRA [Suspect]
     Indication: RHEUMATOID ARTHRITIS
     Dosage: 40 MG, 1 IN 1 WK, SUBCUTANEOUS
     Route: 058
     Dates: start: 20041201
  3. METFORMIN HCL [Concomitant]
  4. TOPROL-XL [Concomitant]
  5. BENICAR [Concomitant]
  6. VOLTARIN [Concomitant]
  7. VENALFAXINE HYDROCHLORIDE [Concomitant]

REACTIONS (3)
  - ARTHRALGIA [None]
  - BACK PAIN [None]
  - DRUG INEFFECTIVE [None]
